FAERS Safety Report 5135456-2 (Version None)
Quarter: 2006Q4

REPORT INFORMATION
  Report Type: 
  Country: None (occurrence: None)
  Receive Date: 20061024
  Receipt Date: 20061024
  Transmission Date: 20070319
  Serious: Yes (Hospitalization)
  Sender: FDA-Public Use
  Company Number: None

PATIENT
  Age: 57 Year
  Sex: Female
  Weight: 90.2658 kg

DRUGS (8)
  1. GEMCITABINE [Suspect]
     Indication: SARCOMA
     Dosage: 900MG/M2
     Dates: start: 20060817, end: 20061001
  2. DOCETAXEL [Suspect]
     Dosage: 100 MG/M2
     Dates: start: 20060817, end: 20061001
  3. LISINOPRIL [Concomitant]
  4. PREVACID [Concomitant]
  5. SINGULAIR [Concomitant]
  6. PULMACORT [Concomitant]
  7. KYTRIL [Concomitant]
  8. DECADRON [Concomitant]

REACTIONS (7)
  - ABDOMINAL TENDERNESS [None]
  - BODY TEMPERATURE INCREASED [None]
  - CHOLELITHIASIS [None]
  - DIARRHOEA [None]
  - NAUSEA [None]
  - ORAL INTAKE REDUCED [None]
  - VOMITING [None]
